FAERS Safety Report 9236509 (Version 1)
Quarter: 2013Q2

REPORT INFORMATION
  Report Type: Spontaneous
  Country: GR (occurrence: None)
  Receive Date: 20130415
  Receipt Date: 20130415
  Transmission Date: 20140414
  Serious: Yes (Life-Threatening)
  Sender: FDA-Public Use
  Company Number: ACO_35417_2013

PATIENT
  Age: 57 Year
  Sex: Female

DRUGS (3)
  1. FAMPYRA (DALFAMPRIDINE) TABLET, 10MG [Suspect]
     Indication: GAIT DISTURBANCE
     Route: 048
     Dates: start: 20121215, end: 20130311
  2. TYSABRI (NATALIZUMAB) [Concomitant]
  3. MIOREL (THIOCOLCHICOSIDE) [Concomitant]

REACTIONS (1)
  - Epilepsy [None]
